FAERS Safety Report 13092854 (Version 1)
Quarter: 2017Q1

REPORT INFORMATION
  Report Type: Spontaneous
  Country: US (occurrence: US)
  Receive Date: 20170105
  Receipt Date: 20170105
  Transmission Date: 20170428
  Serious: Yes (Life-Threatening, Hospitalization, Disabling)
  Sender: FDA-Public Use
  Company Number: None

PATIENT
  Age: 19 Year
  Sex: Female
  Weight: 72.58 kg

DRUGS (1)
  1. NEXPLANON [Suspect]
     Active Substance: ETONOGESTREL
     Indication: CONTRACEPTION
     Dates: start: 20160921

REACTIONS (19)
  - Crying [None]
  - Influenza [None]
  - Depressed mood [None]
  - Headache [None]
  - Weight decreased [None]
  - Feelings of worthlessness [None]
  - Fatigue [None]
  - Blood pressure increased [None]
  - Speech disorder [None]
  - Nightmare [None]
  - Decreased appetite [None]
  - Asthenia [None]
  - Insomnia [None]
  - Anxiety [None]
  - Haemorrhage [None]
  - Depression [None]
  - Mood swings [None]
  - Nervousness [None]
  - Dyspnoea [None]

NARRATIVE: CASE EVENT DATE: 20161229
